FAERS Safety Report 21817174 (Version 1)
Quarter: 2023Q1

REPORT INFORMATION
  Report Type: Spontaneous
  Country: GB (occurrence: GB)
  Receive Date: 20230104
  Receipt Date: 20230104
  Transmission Date: 20230418
  Serious: Yes (Other)
  Sender: FDA-Public Use
  Company Number: GB-LABORATORIOS LICONSA S.A.-2212GB05693

PATIENT
  Age: 55 Year
  Sex: Male

DRUGS (1)
  1. LANSOPRAZOLE [Suspect]
     Active Substance: LANSOPRAZOLE
     Indication: Product used for unknown indication
     Dosage: 15?30MG FOR 30 DAYS

REACTIONS (1)
  - Autoimmune hepatitis [Unknown]
